FAERS Safety Report 12210242 (Version 1)
Quarter: 2016Q1

REPORT INFORMATION
  Report Type: Spontaneous
  Country: US (occurrence: None)
  Receive Date: 20160324
  Receipt Date: 20160324
  Transmission Date: 20160526
  Serious: No
  Sender: FDA-Public Use
  Company Number: None

PATIENT
  Age: 56 Year
  Sex: Male

DRUGS (1)
  1. SUSTIVA [Suspect]
     Active Substance: EFAVIRENZ
     Route: 048

REACTIONS (1)
  - Rash [None]

NARRATIVE: CASE EVENT DATE: 20160310
